FAERS Safety Report 4852301-0 (Version None)
Quarter: 2005Q4

REPORT INFORMATION
  Report Type: 
  Country: None (occurrence: None)
  Receive Date: 20051213
  Receipt Date: 20021113
  Transmission Date: 20060501
  Serious: Yes (Hospitalization)
  Sender: FDA-Public Use
  Company Number: US-MERCK-0211USA01493

PATIENT
  Age: 56 Year
  Sex: Male
  Weight: 97 kg

DRUGS (29)
  1. ZOCOR [Suspect]
     Indication: HYPERLIPIDAEMIA
     Route: 048
     Dates: start: 20010801, end: 20020101
  2. DOCUSATE SODIUM [Concomitant]
     Route: 048
  3. LANOXIN [Concomitant]
     Route: 048
     Dates: end: 20020101
  4. LANOXIN [Concomitant]
     Route: 048
     Dates: start: 20020109
  5. RANITIDINE [Concomitant]
     Indication: GASTROOESOPHAGEAL REFLUX DISEASE
     Route: 048
     Dates: start: 20020108
  6. RANITIDINE [Concomitant]
     Route: 048
     Dates: start: 20020102, end: 20050107
  7. SPIRONOLACTONE [Concomitant]
     Route: 048
     Dates: end: 20020101
  8. GLIPIZIDE [Concomitant]
     Route: 048
  9. TIAZAC [Concomitant]
     Route: 048
  10. ASPIRIN [Concomitant]
     Route: 048
     Dates: end: 20020101
  11. ASPIRIN [Concomitant]
     Route: 048
     Dates: start: 20020102, end: 20020108
  12. ASPIRIN [Concomitant]
     Route: 048
     Dates: start: 20020109
  13. LOPID [Concomitant]
     Indication: LIPIDS INCREASED
     Route: 048
     Dates: end: 20020101
  14. POTASSIUM CHLORIDE [Concomitant]
     Route: 048
     Dates: end: 20020101
  15. POTASSIUM CHLORIDE [Concomitant]
     Route: 048
     Dates: start: 20020109
  16. NITROGLYCERIN [Concomitant]
     Route: 060
  17. LASIX [Concomitant]
     Route: 048
     Dates: end: 20020101
  18. LASIX [Concomitant]
     Route: 048
     Dates: start: 20020109
  19. ALBUTEROL [Concomitant]
     Route: 048
     Dates: end: 20020101
  20. ALBUTEROL [Concomitant]
     Route: 048
     Dates: start: 20020109
  21. ACETAMINOPHEN AND PROPOXYPHENE HYDROCHLORIDE [Concomitant]
     Indication: PAIN
     Route: 048
     Dates: start: 20050101
  22. TEGRETOL [Concomitant]
     Indication: CLUSTER HEADACHE
     Route: 048
     Dates: end: 20020101
  23. TEGRETOL [Concomitant]
     Route: 048
     Dates: start: 20020109
  24. METOPROLOL TARTRATE [Concomitant]
     Route: 048
  25. LISINOPRIL [Concomitant]
     Route: 048
     Dates: end: 20020101
  26. LISINOPRIL [Concomitant]
     Route: 048
     Dates: start: 20020109
  27. LISINOPRIL [Concomitant]
     Route: 048
     Dates: start: 20020102, end: 20050108
  28. MAGNESIUM OXIDE [Concomitant]
     Indication: MUSCLE SPASMS
     Route: 048
     Dates: end: 20020101
  29. MAGNESIUM OXIDE [Concomitant]
     Route: 048
     Dates: start: 20020109

REACTIONS (11)
  - ANXIETY [None]
  - CHEST DISCOMFORT [None]
  - CORONARY ARTERY DISEASE [None]
  - DRUG INTERACTION [None]
  - DYSPNOEA EXERTIONAL [None]
  - INSOMNIA [None]
  - NORMOCHROMIC NORMOCYTIC ANAEMIA [None]
  - RENAL FAILURE [None]
  - RETCHING [None]
  - RHABDOMYOLYSIS [None]
  - VIRAL INFECTION [None]
